FAERS Safety Report 8667797 (Version 3)
Quarter: 2012Q4

REPORT INFORMATION
  Report Type: 
  Country: IT (occurrence: IT)
  Receive Date: 20120717
  Receipt Date: 20121226
  Transmission Date: 20130627
  Serious: Yes (Other)
  Sender: FDA-Public Use
  Company Number: IT-PFIZER INC-2012169747

PATIENT
  Age: 63 Year
  Sex: Male
  Weight: 79 kg

DRUGS (3)
  1. SUTENT [Suspect]
     Indication: PANCREATIC NEUROENDOCRINE TUMOR
     Dosage: 37.5 mg (12.5 mg + 25 mg)
     Route: 048
     Dates: start: 20120611, end: 20120705
  2. SUTENT [Suspect]
     Dosage: 37.5 mg (12.5 mg + 25 mg)
     Route: 048
     Dates: start: 20120611, end: 20120705
  3. LANREOTIDE [Concomitant]
     Indication: PANCREATIC NEUROENDOCRINE TUMOR
     Dosage: 120 mg, monthly
     Route: 042

REACTIONS (1)
  - Neurosensory hypoacusis [Recovering/Resolving]
